FAERS Safety Report 9305412 (Version 1)
Quarter: 2013Q2

REPORT INFORMATION
  Report Type: Spontaneous
  Country: IT (occurrence: IT)
  Receive Date: 20130523
  Receipt Date: 20130523
  Transmission Date: 20140414
  Serious: Yes (Other)
  Sender: FDA-Public Use
  Company Number: IT-BRISTOL-MYERS SQUIBB COMPANY-18918938

PATIENT
  Age: 80 Year
  Sex: Male

DRUGS (7)
  1. COUMADIN TABS 5 MG [Suspect]
     Indication: ATRIAL FIBRILLATION
     Dosage: INTERUPTED ON 1MAY2013
     Route: 048
     Dates: start: 20120906
  2. CEFTRIAXONE SODIUM [Suspect]
     Indication: PNEUMONIA
     Route: 030
     Dates: start: 20130422, end: 20130430
  3. LEVOXACIN [Suspect]
     Indication: PNEUMONIA
     Route: 048
     Dates: start: 20130425, end: 20130430
  4. PANTOPRAZOLE SODIUM [Concomitant]
     Route: 048
  5. LUVION [Concomitant]
     Route: 048
  6. LASIX [Concomitant]
     Route: 048
  7. CONGESCOR [Concomitant]
     Route: 048

REACTIONS (2)
  - Pneumonia [Unknown]
  - International normalised ratio increased [Recovered/Resolved]
